FAERS Safety Report 9746165 (Version 2)
Quarter: 2013Q4

REPORT INFORMATION
  Report Type: Spontaneous
  Country: DE (occurrence: DE)
  Receive Date: 20131211
  Receipt Date: 20131211
  Transmission Date: 20140711
  Serious: No
  Sender: FDA-Public Use
  Company Number: DE-GILEAD-2009-0025838

PATIENT
  Age: 29 Year
  Sex: Male
  Weight: 69 kg

DRUGS (1)
  1. ATRIPLA [Suspect]
     Indication: HIV INFECTION
     Route: 048
     Dates: start: 20091119, end: 20091130

REACTIONS (1)
  - Rash generalised [Recovered/Resolved]
